FAERS Safety Report 10416804 (Version 3)
Quarter: 2014Q3

REPORT INFORMATION
  Report Type: Report from Study
  Country: US (occurrence: US)
  Receive Date: 20140828
  Receipt Date: 20140912
  Transmission Date: 20150326
  Serious: Yes (Death, Hospitalization, Other)
  Sender: FDA-Public Use
  Company Number: US-JNJFOC-20140825624

PATIENT
  Age: 65 Year
  Sex: Male
  Weight: 76 kg

DRUGS (9)
  1. LOPID [Concomitant]
     Active Substance: GEMFIBROZIL
  2. PRILOSEC [Concomitant]
     Active Substance: OMEPRAZOLE MAGNESIUM
  3. LOTENSIN [Concomitant]
     Active Substance: BENAZEPRIL HYDROCHLORIDE
  4. ZESTRIL [Concomitant]
     Active Substance: LISINOPRIL
  5. ZYLOPRIM [Concomitant]
     Active Substance: ALLOPURINOL
  6. HYDROCODONE [Concomitant]
     Active Substance: HYDROCODONE
  7. IMBRUVICA [Suspect]
     Active Substance: IBRUTINIB
     Indication: B-CELL SMALL LYMPHOCYTIC LYMPHOMA
     Route: 048
     Dates: start: 20140625
  8. GLUCOPHAGE [Concomitant]
     Active Substance: METFORMIN HYDROCHLORIDE
  9. IMBRUVICA [Suspect]
     Active Substance: IBRUTINIB
     Indication: CHRONIC LYMPHOCYTIC LEUKAEMIA
     Route: 048
     Dates: start: 20140625

REACTIONS (5)
  - Acute respiratory failure [Fatal]
  - Hypotension [Unknown]
  - Immunosuppression [Unknown]
  - Bacterial sepsis [Fatal]
  - Anaemia [Unknown]

NARRATIVE: CASE EVENT DATE: 201408
